FAERS Safety Report 8086700-3 (Version None)
Quarter: 2012Q1

REPORT INFORMATION
  Report Type: 
  Country: None (occurrence: None)
  Receive Date: 20120128
  Receipt Date: 20110610
  Transmission Date: 20120608
  Serious: No
  Sender: FDA-Public Use
  Company Number: US-ABBOTT-11P-163-0731808-00

PATIENT
  Age: 47 Year
  Sex: Female

DRUGS (4)
  1. HUMIRA [Suspect]
     Indication: PSORIASIS
     Dates: start: 20110505
  2. LOESTRIN 1.5/30 [Concomitant]
     Indication: HORMONE REPLACEMENT THERAPY
     Dosage: 1/20
  3. CLOBETASOL [Concomitant]
     Indication: PSORIASIS
  4. NORTRIPTYLINE HCL [Concomitant]
     Indication: MOTION SICKNESS
     Route: 048

REACTIONS (3)
  - INJECTION SITE PRURITUS [None]
  - INJECTION SITE RASH [None]
  - INJECTION SITE WARMTH [None]
